FAERS Safety Report 10626219 (Version 1)
Quarter: 2014Q4

REPORT INFORMATION
  Report Type: Spontaneous
  Country: US (occurrence: US)
  Receive Date: 20141204
  Receipt Date: 20141204
  Transmission Date: 20150529
  Serious: Yes (Other)
  Sender: FDA-Public Use
  Company Number: US-WATSON-2014-25921

PATIENT
  Age: 52 Year
  Sex: Male

DRUGS (2)
  1. TESTOSTERONE (WATSON LABORATORIES) [Suspect]
     Active Substance: TESTOSTERONE
     Indication: PRODUCT USED FOR UNKNOWN INDICATION
     Dosage: 150 MG, 1/ THREE WEEKS
     Route: 030
  2. TESTOSTERONE (WATSON LABORATORIES) [Suspect]
     Active Substance: TESTOSTERONE
     Dosage: 150 MG, 1/TWO WEEKS
     Route: 030

REACTIONS (2)
  - Deep vein thrombosis [Recovered/Resolved]
  - Pulmonary embolism [Recovered/Resolved]
